FAERS Safety Report 12833398 (Version 1)
Quarter: 2016Q4

REPORT INFORMATION
  Report Type: Spontaneous
  Country: US (occurrence: US)
  Receive Date: 20161010
  Receipt Date: 20161010
  Transmission Date: 20170207
  Serious: Yes (Disabling)
  Sender: FDA-Public Use
  Company Number: US-ACTELION-A-US2016-143062

PATIENT
  Age: 68 Year
  Sex: Male

DRUGS (1)
  1. VALCHLOR [Suspect]
     Active Substance: MECHLORETHAMINE
     Indication: MYCOSIS FUNGOIDES
     Dosage: UNK UNK, QOD
     Route: 061
     Dates: start: 20160627

REACTIONS (3)
  - Application site erythema [Unknown]
  - Condition aggravated [Unknown]
  - Application site rash [Unknown]
